FAERS Safety Report 13197218 (Version 2)
Quarter: 2017Q2

REPORT INFORMATION
  Report Type: Spontaneous
  Country: DE (occurrence: DE)
  Receive Date: 20170208
  Receipt Date: 20170428
  Transmission Date: 20170830
  Serious: Yes (Death, Life-Threatening, Hospitalization, Other)
  Sender: FDA-Public Use
  Company Number: DE-UCBSA-2017004942

PATIENT
  Age: 72 Year
  Sex: Female

DRUGS (8)
  1. LEVETIRACETAM. [Suspect]
     Active Substance: LEVETIRACETAM
     Indication: CLONIC CONVULSION
     Dosage: 3 G/DAY
  2. LORAZEPAM. [Concomitant]
     Active Substance: LORAZEPAM
     Indication: PRODUCT USED FOR UNKNOWN INDICATION
     Dosage: 2 MG
     Route: 042
  3. PHENYTOIN. [Concomitant]
     Active Substance: PHENYTOIN
     Indication: STATUS EPILEPTICUS
     Dosage: 12-15 MG/HOUR
     Route: 042
  4. VALPROATE [Concomitant]
     Active Substance: VALPROIC ACID
     Indication: PRODUCT USED FOR UNKNOWN INDICATION
     Dosage: 75-110 MG/HOUR
  5. LACOSAMIDE. [Suspect]
     Active Substance: LACOSAMIDE
     Indication: STATUS EPILEPTICUS
     Dosage: 200 MG/DAY
  6. METHYLPREDNISOLONE. [Concomitant]
     Active Substance: METHYLPREDNISOLONE
     Indication: PRODUCT USED FOR UNKNOWN INDICATION
     Dosage: 1 G/DAY
     Route: 042
  7. LACOSAMIDE. [Suspect]
     Active Substance: LACOSAMIDE
     Indication: OFF LABEL USE
  8. PHENYTOIN. [Concomitant]
     Active Substance: PHENYTOIN
     Dosage: 450 MG/D PER GAVAGE

REACTIONS (7)
  - Coma [Unknown]
  - Ammonia increased [Unknown]
  - Off label use [Unknown]
  - Somnolence [Unknown]
  - Fall [Fatal]
  - Pelvic fracture [Fatal]
  - Status epilepticus [Unknown]

NARRATIVE: CASE EVENT DATE: 20150903
